FAERS Safety Report 21017218 (Version 1)
Quarter: 2022Q2

REPORT INFORMATION
  Report Type: Spontaneous
  Country: US (occurrence: US)
  Receive Date: 20220628
  Receipt Date: 20220628
  Transmission Date: 20220720
  Serious: No
  Sender: FDA-Public Use
  Company Number: US-BAYER-2022A089087

PATIENT
  Age: 60 Year
  Sex: Female

DRUGS (1)
  1. ALEVE [Suspect]
     Active Substance: NAPROXEN SODIUM
     Indication: Arthritis
     Dosage: 440 MG
     Dates: start: 20220627, end: 20220627

REACTIONS (2)
  - Product use complaint [None]
  - Nausea [None]

NARRATIVE: CASE EVENT DATE: 20220627
